FAERS Safety Report 22955717 (Version 2)
Quarter: 2023Q4

REPORT INFORMATION
  Report Type: Spontaneous
  Country: US (occurrence: US)
  Receive Date: 20230919
  Receipt Date: 20231010
  Transmission Date: 20240110
  Serious: No
  Sender: FDA-Public Use
  Company Number: US-GSK-US2023123630

PATIENT
  Age: 72 Year
  Sex: Female

DRUGS (1)
  1. WELLBUTRIN SR [Suspect]
     Active Substance: BUPROPION HYDROCHLORIDE
     Indication: Parosmia
     Dosage: 200 MG, BID (200 MG TWICE DAILY)
     Dates: end: 20230908

REACTIONS (2)
  - Drug ineffective [Unknown]
  - Product odour abnormal [Unknown]
